FAERS Safety Report 5223801-9 (Version None)
Quarter: 2007Q1

REPORT INFORMATION
  Report Type: 
  Country: None (occurrence: None)
  Receive Date: 20070130
  Receipt Date: 20070122
  Transmission Date: 20070707
  Serious: Yes (Disabling)
  Sender: FDA-Public Use
  Company Number: PHRM2007FR00598

PATIENT
  Age: 76 Year
  Sex: Female

DRUGS (2)
  1. CORTANCYL [Suspect]
     Indication: BREAST CANCER METASTATIC
     Dosage: 20 MG DAILY
     Route: 048
  2. ZOMETA [Suspect]
     Indication: METASTASES TO BONE
     Dosage: 4 MG, QMO
     Route: 042
     Dates: start: 20030315

REACTIONS (4)
  - INFECTION [None]
  - OSTEITIS [None]
  - OSTEONECROSIS [None]
  - WOUND DEBRIDEMENT [None]
